FAERS Safety Report 9506308 (Version 1)
Quarter: 2013Q1

REPORT INFORMATION
  Report Type: Spontaneous
  Country: US (occurrence: None)
  Receive Date: 20130301
  Receipt Date: 20130301
  Transmission Date: 20140127
  Serious: Yes (Other)
  Sender: FDA-Public Use
  Company Number: RB-39543-2012

PATIENT
  Age: 5 Year
  Sex: Female

DRUGS (1)
  1. SUBOXONE [Suspect]
     Indication: ACCIDENTAL EXPOSURE TO PRODUCT
     Dosage: TOOK ONE HALF TABLET
     Route: 048
     Dates: start: 20120418, end: 20120418

REACTIONS (3)
  - Accidental exposure to product [None]
  - Vomiting [None]
  - Gait disturbance [None]
